FAERS Safety Report 13443707 (Version 1)
Quarter: 2017Q2

REPORT INFORMATION
  Report Type: Spontaneous
  Country: US (occurrence: US)
  Receive Date: 20170413
  Receipt Date: 20170413
  Transmission Date: 20170830
  Serious: No
  Sender: FDA-Public Use
  Company Number: None

PATIENT
  Age: 29 Year
  Sex: Male

DRUGS (1)
  1. REMICADE [Suspect]
     Active Substance: INFLIXIMAB
     Indication: CROHN^S DISEASE
     Dosage: 350MG EVERY 8 WEEKS IV
     Route: 042
     Dates: start: 20160101, end: 20170401

REACTIONS (3)
  - Peripheral swelling [None]
  - Vasculitic rash [None]
  - Joint swelling [None]

NARRATIVE: CASE EVENT DATE: 20160301
